FAERS Safety Report 4902003-7 (Version None)
Quarter: 2006Q1

REPORT INFORMATION
  Report Type: 
  Country: None (occurrence: None)
  Receive Date: 20060201
  Receipt Date: 20060201
  Transmission Date: 20060701
  Serious: Yes (Hospitalization)
  Sender: FDA-Public Use
  Company Number: None

PATIENT
  Sex: Male
  Weight: 71.8 kg

DRUGS (9)
  1. DIDANOSINE [Suspect]
     Indication: HIV INFECTION
     Dosage: 125 MG DAILY PO
     Route: 048
     Dates: start: 20040201, end: 20051001
  2. STAVUDINE [Suspect]
     Indication: HIV INFECTION
     Dosage: 20 MG DAILY PO
     Route: 048
     Dates: start: 20050501, end: 20051001
  3. ATOVAQUONE [Concomitant]
  4. DIALYVITE [Concomitant]
  5. FELODIPINE [Concomitant]
  6. LOPINAVIR/RITONAVIR [Concomitant]
  7. OMEPRAZOLE [Concomitant]
  8. PREDNISONE [Concomitant]
  9. GABAPENTIN [Concomitant]

REACTIONS (5)
  - ABDOMINAL PAIN [None]
  - CHEST PAIN [None]
  - DIALYSIS [None]
  - POST PROCEDURAL COMPLICATION [None]
  - POST PROCEDURAL DIARRHOEA [None]
